FAERS Safety Report 17828277 (Version 1)
Quarter: 2020Q2

REPORT INFORMATION
  Report Type: Spontaneous
  Country: HR (occurrence: HR)
  Receive Date: 20200527
  Receipt Date: 20200527
  Transmission Date: 20200714
  Serious: Yes (Other)
  Sender: FDA-Public Use
  Company Number: HR-TEVA-2020-HR-1239722

PATIENT
  Sex: Male

DRUGS (2)
  1. PRAXITEN 15 [Suspect]
     Active Substance: OXAZEPAM
     Dosage: 105 MG
     Route: 048
     Dates: start: 20200227, end: 20200227
  2. TRIPLIXAM [Suspect]
     Active Substance: AMLODIPINE BESYLATE\INDAPAMIDE\PERINDOPRIL ARGININE
     Route: 048
     Dates: start: 20200227, end: 20200227

REACTIONS (2)
  - Suicide attempt [Unknown]
  - Intentional overdose [Unknown]

NARRATIVE: CASE EVENT DATE: 20200227
